FAERS Safety Report 5632041-0 (Version None)
Quarter: 2008Q1

REPORT INFORMATION
  Report Type: 
  Country: None (occurrence: None)
  Receive Date: 20080220
  Receipt Date: 20080220
  Transmission Date: 20080703
  Serious: Yes (Other)
  Sender: FDA-Public Use
  Company Number: A0710745A

PATIENT
  Age: 61 Year
  Sex: Female

DRUGS (1)
  1. ALLI [Suspect]
     Indication: WEIGHT LOSS DIET
     Route: 048
     Dates: start: 20080218, end: 20080218

REACTIONS (10)
  - ABDOMINAL PAIN [None]
  - AMNESIA [None]
  - ASTHENIA [None]
  - DIARRHOEA [None]
  - DYSPEPSIA [None]
  - LOSS OF CONSCIOUSNESS [None]
  - MALAISE [None]
  - NAUSEA [None]
  - SYNCOPE [None]
  - VOMITING [None]
